FAERS Safety Report 5725304-1 (Version None)
Quarter: 2008Q2

REPORT INFORMATION
  Report Type: 
  Country: None (occurrence: None)
  Receive Date: 20080429
  Receipt Date: 20080417
  Transmission Date: 20081010
  Serious: Yes (Disabling)
  Sender: FDA-Public Use
  Company Number: 000233

PATIENT
  Age: 71 Year
  Sex: Male

DRUGS (2)
  1. PLETAL [Suspect]
     Indication: INTERMITTENT CLAUDICATION
     Dosage: 100 MG, ORAL
     Route: 048
     Dates: start: 20071101, end: 20080221
  2. ACETYLSALICYLIC ACID SRT [Concomitant]

REACTIONS (3)
  - CONDITION AGGRAVATED [None]
  - DIABETIC RETINOPATHY [None]
  - RETINAL HAEMORRHAGE [None]
